FAERS Safety Report 7961221-4 (Version None)
Quarter: 2011Q4

REPORT INFORMATION
  Report Type: 
  Country: None (occurrence: None)
  Receive Date: 20111202
  Receipt Date: 20111123
  Transmission Date: 20120403
  Serious: Yes (Hospitalization, Other)
  Sender: FDA-Public Use
  Company Number: ADR-2011-10589

PATIENT
  Age: 66 Year
  Sex: Male

DRUGS (4)
  1. DILAUDID [Concomitant]
  2. LIORESAL [Suspect]
     Indication: PAIN
     Dosage: 281.55 MCG, DAILY, INTR
  3. LIORESAL [Suspect]
     Indication: POST LAMINECTOMY SYNDROME
     Dosage: 281.55 MCG, DAILY, INTR
  4. BUPIVACAINE HCL [Concomitant]

REACTIONS (4)
  - INFLAMMATION [None]
  - RADICULAR PAIN [None]
  - INFUSION SITE MASS [None]
  - INFUSION SITE INFLAMMATION [None]
